FAERS Safety Report 5829030-X (Version None)
Quarter: 2008Q3

REPORT INFORMATION
  Report Type: 
  Country: None (occurrence: None)
  Receive Date: 20080731
  Receipt Date: 20080721
  Transmission Date: 20090109
  Serious: Yes (Hospitalization, Other)
  Sender: FDA-Public Use
  Company Number: US-JNJFOC-20080304192

PATIENT
  Sex: Male

DRUGS (8)
  1. REMICADE [Suspect]
     Indication: CROHN'S DISEASE
     Route: 042
  2. METHYLPREDNISOLONE [Concomitant]
     Indication: CROHN'S DISEASE
  3. MERCAPTOPURINE [Concomitant]
  4. MERCAPTOPURINE [Concomitant]
     Indication: CROHN'S DISEASE
  5. FOLIC ACID [Concomitant]
     Indication: CROHN'S DISEASE
  6. FERROUS SULFATE TAB [Concomitant]
     Indication: ANAEMIA
  7. LANSOPRAZOLE [Concomitant]
     Indication: CROHN'S DISEASE
  8. CALCIUM [Concomitant]
     Indication: CROHN'S DISEASE

REACTIONS (1)
  - ENCEPHALITIS [None]
